FAERS Safety Report 13550222 (Version 1)
Quarter: 2017Q2

REPORT INFORMATION
  Report Type: Spontaneous
  Country: US (occurrence: US)
  Receive Date: 20170516
  Receipt Date: 20170516
  Transmission Date: 20170830
  Serious: Yes (Life-Threatening, Other)
  Sender: FDA-Public Use
  Company Number: US-SA-2017SA086278

PATIENT
  Age: 28 Year
  Sex: Male

DRUGS (13)
  1. HYDROXYZINE [Interacting]
     Active Substance: HYDROXYZINE HYDROCHLORIDE
     Indication: SEDATION
     Dosage: NIGHTLY REGIMEN
     Route: 065
  2. PROPRANOLOL [Concomitant]
     Active Substance: PROPRANOLOL HYDROCHLORIDE
     Indication: ANXIETY
     Route: 065
  3. PROPRANOLOL [Concomitant]
     Active Substance: PROPRANOLOL HYDROCHLORIDE
     Indication: ANXIETY
     Dosage: AS NEEDED
     Route: 065
  4. MELATONIN [Interacting]
     Active Substance: MELATONIN
     Indication: SEDATION
     Dosage: NIGHTLY REGIMEN
     Route: 065
  5. TRAMADOL. [Interacting]
     Active Substance: TRAMADOL
     Indication: ARTHRALGIA
     Route: 065
  6. TRAMADOL. [Interacting]
     Active Substance: TRAMADOL
     Indication: SEDATION
     Route: 065
  7. ZOLPIDEM [Interacting]
     Active Substance: ZOLPIDEM\ZOLPIDEM TARTRATE
     Indication: DEPRESSION
     Dosage: EVERY NIGHT
     Route: 065
  8. ZOLPIDEM [Suspect]
     Active Substance: ZOLPIDEM\ZOLPIDEM TARTRATE
     Indication: INSOMNIA
     Dosage: EVERY NIGHT
     Route: 065
  9. GABAPENTIN. [Interacting]
     Active Substance: GABAPENTIN
     Indication: ANXIETY
     Route: 065
  10. GABAPENTIN. [Interacting]
     Active Substance: GABAPENTIN
     Indication: SEDATION
     Route: 065
  11. FLUOXETINE [Interacting]
     Active Substance: FLUOXETINE HYDROCHLORIDE
     Indication: DEPRESSION
     Route: 065
  12. GABAPENTIN. [Interacting]
     Active Substance: GABAPENTIN
     Indication: IRRITABILITY
     Route: 065
  13. FLUOXETINE [Interacting]
     Active Substance: FLUOXETINE HYDROCHLORIDE
     Indication: POST-TRAUMATIC STRESS DISORDER
     Route: 065

REACTIONS (19)
  - Drug interaction [Unknown]
  - Confusional state [Unknown]
  - Disorientation [Unknown]
  - Depressed mood [Recovering/Resolving]
  - Anxiety [Unknown]
  - Suicidal behaviour [Unknown]
  - Somnambulism [Unknown]
  - Anterograde amnesia [Unknown]
  - Snoring [Unknown]
  - Nightmare [Recovering/Resolving]
  - Hypervigilance [Unknown]
  - Parasomnia [Recovered/Resolved]
  - Abnormal behaviour [Unknown]
  - Autonomic nervous system imbalance [Unknown]
  - Suicide attempt [Unknown]
  - Abnormal dreams [Not Recovered/Not Resolved]
  - Electromyogram abnormal [Unknown]
  - Speech disorder [Unknown]
  - Irritability [Unknown]
